FAERS Safety Report 20137455 (Version 1)
Quarter: 2021Q4

REPORT INFORMATION
  Report Type: Spontaneous
  Country: US (occurrence: US)
  Receive Date: 20211201
  Receipt Date: 20211201
  Transmission Date: 20220303
  Serious: Yes (Hospitalization, Other)
  Sender: FDA-Public Use
  Company Number: US-GILEAD-2021-0558933

PATIENT
  Sex: Female

DRUGS (5)
  1. VEMLIDY [Suspect]
     Active Substance: TENOFOVIR ALAFENAMIDE FUMARATE
     Indication: Chronic hepatitis B
     Dosage: 1 DOSAGE FORM, QD
     Route: 048
  2. LISINOPRIL [Concomitant]
     Active Substance: LISINOPRIL
  3. AMITRIPTYLINE HYDROCHLORIDE [Concomitant]
     Active Substance: AMITRIPTYLINE HYDROCHLORIDE
  4. MELOXICAM [Concomitant]
     Active Substance: MELOXICAM
  5. ENTECAVIR [Concomitant]
     Active Substance: ENTECAVIR

REACTIONS (1)
  - Malaise [Unknown]
